FAERS Safety Report 22274453 (Version 1)
Quarter: 2023Q2

REPORT INFORMATION
  Report Type: Spontaneous
  Country: US (occurrence: None)
  Receive Date: 20230501
  Receipt Date: 20230501
  Transmission Date: 20230721
  Serious: Yes (Hospitalization)
  Sender: FDA-Public Use
  Company Number: None

PATIENT
  Age: 86 Year
  Sex: Female
  Weight: 53.61 kg

DRUGS (21)
  1. LENALIDOMIDE [Suspect]
     Active Substance: LENALIDOMIDE
     Indication: Diffuse large B-cell lymphoma
     Dosage: OTHER FREQUENCY : 21DON7DOFF;?
     Route: 048
     Dates: start: 202303
  2. ALEVE [Concomitant]
  3. VITAMIN C [Concomitant]
     Active Substance: ASCORBIC ACID
  4. DIABETIC TUSSIN DM [Concomitant]
  5. FUROSEMIDE [Concomitant]
  6. HYDROCORTISONE [Concomitant]
  7. IODINE [Concomitant]
     Active Substance: IODINE
  8. IODOSORB LORAZEPAM [Concomitant]
  9. WOMENS VITACRAVES [Concomitant]
  10. VOMENTS VITACRAVES [Concomitant]
  11. PROTOFOAM [Concomitant]
  12. SALAN-PAS LIDO [Concomitant]
  13. ASPIRIN [Concomitant]
  14. TIZANIDINE [Concomitant]
     Active Substance: TIZANIDINE
  15. TRAMADOL [Concomitant]
  16. TYLENOL [Concomitant]
  17. VALACYCLOVIR [Concomitant]
  18. VENELEX [Concomitant]
  19. VICKS VASORRUB [Concomitant]
  20. VIT D [Concomitant]
  21. VITAMIN B12 [Concomitant]
     Active Substance: CYANOCOBALAMIN

REACTIONS (3)
  - Decubitus ulcer [None]
  - Feeding disorder [None]
  - Dysphagia [None]
